FAERS Safety Report 21194366 (Version 3)
Quarter: 2022Q4

REPORT INFORMATION
  Report Type: Other
  Country: US (occurrence: None)
  Receive Date: 20220810
  Receipt Date: 20221020
  Transmission Date: 20230112
  Serious: Yes (Hospitalization)
  Sender: FDA-Public Use
  Company Number: US-ROCHE-3153031

PATIENT
  Age: 74 Year
  Sex: Female

DRUGS (1)
  1. ALECENSA [Suspect]
     Active Substance: ALECTINIB HYDROCHLORIDE
     Indication: Bronchial carcinoma
     Dosage: TAKE 2 CAPSULE(S) (300MG TOTAL) BY MOUTH TWICE A DAY WITH FOOD
     Route: 048

REACTIONS (4)
  - Haematemesis [Unknown]
  - Thrombosis [Unknown]
  - Haemoptysis [Unknown]
  - Pulmonary thrombosis [Unknown]
